FAERS Safety Report 6635482-8 (Version None)
Quarter: 2010Q1

REPORT INFORMATION
  Report Type: 
  Country: None (occurrence: None)
  Receive Date: 20100315
  Receipt Date: 20090610
  Transmission Date: 20100710
  Serious: No
  Sender: FDA-Public Use
  Company Number: US-ABBOTT-09P-163-0579130-00

PATIENT
  Sex: Female
  Weight: 68.1 kg

DRUGS (4)
  1. DEPAKOTE [Suspect]
     Indication: BIPOLAR DISORDER
     Dosage: 500 MG QAM AND 1000 MG AT BEDTIME
     Route: 048
     Dates: start: 20090401
  2. HALDOL [Concomitant]
     Indication: BIPOLAR DISORDER
     Dates: start: 20090401
  3. COGENTIN [Concomitant]
     Indication: BIPOLAR DISORDER
     Dates: start: 20090401
  4. SEROQUEL [Concomitant]
     Indication: BIPOLAR DISORDER
     Dates: start: 20090401

REACTIONS (5)
  - AGITATION [None]
  - AKATHISIA [None]
  - COGNITIVE DISORDER [None]
  - DRUG LEVEL INCREASED [None]
  - DYSARTHRIA [None]
